FAERS Safety Report 5496021-0 (Version None)
Quarter: 2007Q4

REPORT INFORMATION
  Report Type: 
  Country: None (occurrence: None)
  Receive Date: 20071025
  Receipt Date: 20070109
  Transmission Date: 20080405
  Serious: No
  Sender: FDA-Public Use
  Company Number: A0634955A

PATIENT
  Sex: Male

DRUGS (6)
  1. ADVAIR DISKUS 100/50 [Suspect]
     Indication: ASTHMA
     Route: 055
  2. BACLOFEN [Concomitant]
  3. DIAZEPAM [Concomitant]
  4. CELEBREX [Concomitant]
  5. UNSPECIFIED MEDICATION [Concomitant]
  6. ALLEGRA [Concomitant]

REACTIONS (5)
  - ASTHENIA [None]
  - FATIGUE [None]
  - LACRIMATION INCREASED [None]
  - PRURITUS [None]
  - RHINORRHOEA [None]
